FAERS Safety Report 14911069 (Version 1)
Quarter: 2018Q2

REPORT INFORMATION
  Report Type: Spontaneous
  Country: CA (occurrence: CA)
  Receive Date: 20180518
  Receipt Date: 20180518
  Transmission Date: 20180711
  Serious: Yes (Hospitalization, Other)
  Sender: FDA-Public Use
  Company Number: CA-CONCORDIA PHARMACEUTICALS INC.-GSH201805-001663

PATIENT
  Age: 26 Year
  Sex: Female

DRUGS (7)
  1. PREDNISONE. [Concomitant]
     Active Substance: PREDNISONE
  2. NAPROXEN. [Concomitant]
     Active Substance: NAPROXEN
  3. ACETYLSALICYLIC ACID [Concomitant]
     Active Substance: ASPIRIN
  4. AZATHIOPRINE. [Suspect]
     Active Substance: AZATHIOPRINE
     Indication: PRODUCT USED FOR UNKNOWN INDICATION
     Route: 065
  5. COLCHICINE. [Concomitant]
     Active Substance: COLCHICINE
  6. CELLCEPT [Suspect]
     Active Substance: MYCOPHENOLATE MOFETIL\MYCOPHENOLATE MOFETIL HYDROCHLORIDE
     Indication: SYSTEMIC LUPUS ERYTHEMATOSUS
     Route: 048
  7. PLAQUENIL [Suspect]
     Active Substance: HYDROXYCHLOROQUINE SULFATE
     Indication: PRODUCT USED FOR UNKNOWN INDICATION
     Route: 048

REACTIONS (16)
  - Aortic valve incompetence [Unknown]
  - Asthenia [Unknown]
  - Vasculitis [Unknown]
  - Drug ineffective [Unknown]
  - Nephritis [Unknown]
  - Systemic lupus erythematosus [Unknown]
  - Left ventricular dilatation [Unknown]
  - Myocarditis [Unknown]
  - Dyspnoea [Unknown]
  - Nausea [Unknown]
  - Chest discomfort [Unknown]
  - Heart rate increased [Unknown]
  - Pleuritic pain [Unknown]
  - Headache [Unknown]
  - Treatment failure [Unknown]
  - Hyperhidrosis [Unknown]
